FAERS Safety Report 18633015 (Version 1)
Quarter: 2020Q4

REPORT INFORMATION
  Report Type: Report from Study
  Country: None (occurrence: US)
  Receive Date: 20201218
  Receipt Date: 20201218
  Transmission Date: 20210114
  Serious: Yes (Other)
  Sender: FDA-Public Use
  Company Number: US-ABBVIE-20K-163-3694819-00

PATIENT
  Sex: Male

DRUGS (1)
  1. HUMIRA [Suspect]
     Active Substance: ADALIMUMAB
     Indication: HIDRADENITIS
     Route: 058

REACTIONS (8)
  - Spinal disorder [Unknown]
  - Allergic oedema [Unknown]
  - Pruritus allergic [Unknown]
  - Influenza [Unknown]
  - Food allergy [Unknown]
  - Arthralgia [Unknown]
  - Psoriatic arthropathy [Unknown]
  - Arthropod bite [Unknown]
